FAERS Safety Report 19923338 (Version 2)
Quarter: 2021Q4

REPORT INFORMATION
  Report Type: Spontaneous
  Country: JP (occurrence: JP)
  Receive Date: 20211006
  Receipt Date: 20211021
  Transmission Date: 20220303
  Serious: Yes (Hospitalization, Disabling)
  Sender: FDA-Public Use
  Company Number: JP-MYLANLABS-2021M1068078

PATIENT
  Age: 74 Year
  Sex: Male

DRUGS (4)
  1. MIZORIBINE [Suspect]
     Active Substance: MIZORIBINE
     Indication: Glomerulonephritis rapidly progressive
     Dosage: 150 MILLIGRAM, QD
     Route: 065
  2. PREDNISOLONE [Suspect]
     Active Substance: PREDNISOLONE
     Indication: Glomerulonephritis rapidly progressive
     Dosage: 30 MILLIGRAM, QD
     Route: 048
     Dates: start: 20210804
  3. PREDNISOLONE [Suspect]
     Active Substance: PREDNISOLONE
     Dosage: 25 MILLIGRAM, QD
     Route: 048
  4. EDOXABAN TOSYLATE [Concomitant]
     Active Substance: EDOXABAN TOSYLATE
     Indication: Atrial fibrillation
     Dosage: UNK
     Route: 048
     Dates: start: 201906, end: 202108

REACTIONS (1)
  - Drug ineffective [Unknown]
